FAERS Safety Report 5888955-X (Version None)
Quarter: 2008Q3

REPORT INFORMATION
  Report Type: 
  Country: None (occurrence: None)
  Receive Date: 20080918
  Receipt Date: 20080918
  Transmission Date: 20090109
  Serious: No
  Sender: FDA-Public Use
  Company Number: None

PATIENT
  Age: 21 Year
  Sex: Female
  Weight: 67.1324 kg

DRUGS (1)
  1. SEPTRA [Suspect]
     Indication: INFECTION
     Dosage: 800/160 BID PO
     Route: 048
     Dates: start: 20080902, end: 20080902

REACTIONS (1)
  - RASH [None]
